FAERS Safety Report 6682577-9 (Version None)
Quarter: 2010Q2

REPORT INFORMATION
  Report Type: 
  Country: None (occurrence: None)
  Receive Date: 20100415
  Receipt Date: 20100409
  Transmission Date: 20101027
  Serious: Yes (Hospitalization)
  Sender: FDA-Public Use
  Company Number: US-WYE-H13985310

PATIENT
  Sex: Female
  Weight: 59.5 kg

DRUGS (12)
  1. TACROLIMUS, TEST ARTICLE IN SIROLIMUS STUDY [Suspect]
     Indication: PROPHYLAXIS AGAINST TRANSPLANT REJECTION
     Route: 048
     Dates: start: 20100224
  2. DILTIAZEM HCL [Suspect]
     Indication: HYPERTENSION
     Route: 048
     Dates: start: 20100226, end: 20100303
  3. AMLODIPINE [Suspect]
     Indication: HYPERTENSION
     Route: 048
     Dates: start: 20100226, end: 20100303
  4. CELLCEPT [Concomitant]
     Indication: PROPHYLAXIS AGAINST TRANSPLANT REJECTION
     Route: 048
     Dates: start: 20100224
  5. AMOXICILLIN [Concomitant]
     Indication: URINARY TRACT INFECTION
     Route: 065
     Dates: start: 20100226, end: 20100306
  6. LISINOPRIL [Concomitant]
     Indication: HYPERTENSION
     Route: 048
     Dates: start: 20100226
  7. SEPTRA [Concomitant]
     Indication: ANTIBIOTIC PROPHYLAXIS
     Route: 048
     Dates: start: 20100226
  8. VALCYTE [Concomitant]
     Indication: ANTIVIRAL PROPHYLAXIS
     Route: 048
     Dates: start: 20100226
  9. MYCELEX [Concomitant]
     Indication: ANTIFUNGAL PROPHYLAXIS
     Route: 048
     Dates: start: 20100226
  10. COLACE [Concomitant]
     Indication: CONSTIPATION
     Dosage: PRN
     Route: 065
     Dates: start: 20100226
  11. DARVOCET-N 100 [Suspect]
     Indication: PAIN
     Dosage: PRN
     Route: 048
     Dates: start: 20100225, end: 20100303
  12. METOPROLOL TARTRATE [Concomitant]
     Indication: HYPERTENSION
     Route: 048
     Dates: start: 20100225

REACTIONS (2)
  - CONSTIPATION [None]
  - THERAPEUTIC AGENT TOXICITY [None]
